FAERS Safety Report 10865142 (Version 1)
Quarter: 2015Q1

REPORT INFORMATION
  Report Type: Report from Study
  Country: US (occurrence: US)
  Receive Date: 20150224
  Receipt Date: 20150224
  Transmission Date: 20150721
  Serious: No
  Sender: FDA-Public Use
  Company Number: US-MYLANLABS-2014S1007934

PATIENT
  Sex: Male
  Weight: 74.25 kg

DRUGS (3)
  1. AMNESTEEM [Suspect]
     Active Substance: ISOTRETINOIN
     Dosage: 20 MG,QD
     Dates: start: 20140310, end: 20140412
  2. AMNESTEEM [Suspect]
     Active Substance: ISOTRETINOIN
     Indication: OFF LABEL USE
  3. AMNESTEEM [Suspect]
     Active Substance: ISOTRETINOIN
     Indication: HIDRADENITIS

REACTIONS (3)
  - Pain [Not Recovered/Not Resolved]
  - Local swelling [Not Recovered/Not Resolved]
  - Condition aggravated [Not Recovered/Not Resolved]

NARRATIVE: CASE EVENT DATE: 2014
